FAERS Safety Report 7997269-3 (Version None)
Quarter: 2011Q4

REPORT INFORMATION
  Report Type: 
  Country: None (occurrence: None)
  Receive Date: 20111221
  Receipt Date: 20111213
  Transmission Date: 20120403
  Serious: Yes (Other)
  Sender: FDA-Public Use
  Company Number: US-JNJFOC-20111206200

PATIENT
  Sex: Male
  Weight: 88.45 kg

DRUGS (3)
  1. CORTICOSTEROID [Suspect]
     Indication: PRODUCT USED FOR UNKNOWN INDICATION
     Route: 065
     Dates: start: 20111001
  2. LEVAQUIN [Suspect]
     Indication: TOOTH INFECTION
     Route: 065
     Dates: start: 20110701, end: 20110101
  3. CIPROFLOXACIN [Suspect]
     Indication: TOOTH INFECTION
     Route: 065
     Dates: start: 20111001, end: 20111001

REACTIONS (6)
  - JOINT INJURY [None]
  - SENSORY DISTURBANCE [None]
  - ARTHRALGIA [None]
  - PAIN [None]
  - RED BLOOD CELL SEDIMENTATION RATE INCREASED [None]
  - ACTIVITIES OF DAILY LIVING IMPAIRED [None]
